FAERS Safety Report 10819418 (Version 1)
Quarter: 2015Q1

REPORT INFORMATION
  Report Type: Report from Study
  Country: US (occurrence: US)
  Receive Date: 20150218
  Receipt Date: 20150218
  Transmission Date: 20150721
  Serious: No
  Sender: FDA-Public Use
  Company Number: US-ABBVIE-14K-163-1292956-00

PATIENT
  Age: 19 Year
  Sex: Male
  Weight: 91.25 kg

DRUGS (3)
  1. INDOMETACIN [Concomitant]
     Active Substance: INDOMETHACIN
     Indication: RHEUMATOID ARTHRITIS
  2. ANTARA [Concomitant]
     Active Substance: FENOFIBRATE
     Indication: BLOOD CHOLESTEROL INCREASED
  3. HUMIRA [Suspect]
     Active Substance: ADALIMUMAB
     Indication: RHEUMATOID ARTHRITIS
     Route: 065
     Dates: start: 2011

REACTIONS (2)
  - Lipoma [Not Recovered/Not Resolved]
  - Nasopharyngitis [Recovered/Resolved]

NARRATIVE: CASE EVENT DATE: 201402
